FAERS Safety Report 5754931-0 (Version None)
Quarter: 2008Q2

REPORT INFORMATION
  Report Type: 
  Country: None (occurrence: None)
  Receive Date: 20080601
  Receipt Date: 20080515
  Transmission Date: 20081010
  Serious: Yes (Other)
  Sender: FDA-Public Use
  Company Number: DE-ABBOTT-07P-062-0414764-00

PATIENT
  Sex: Male

DRUGS (3)
  1. TEVETEN [Suspect]
     Indication: HYPERTENSION
     Route: 048
     Dates: start: 20010601, end: 20060501
  2. TEVETEN [Suspect]
     Indication: HYPERTENSION
     Route: 048
     Dates: start: 20010426, end: 20010501
  3. CARMEN (LERCANIDIPINE HYDROCHLORIDE) [Concomitant]
     Indication: DRUG USE FOR UNKNOWN INDICATION

REACTIONS (3)
  - CHRONIC SINUSITIS [None]
  - PYREXIA [None]
  - RESPIRATORY TRACT INFECTION [None]
